FAERS Safety Report 23240293 (Version 2)
Quarter: 2024Q2

REPORT INFORMATION
  Report Type: Report from Study
  Country: IN (occurrence: IN)
  Receive Date: 20231129
  Receipt Date: 20240513
  Transmission Date: 20240716
  Serious: Yes (Other)
  Sender: FDA-Public Use
  Company Number: IN-002147023-NVSC2023IN251688

PATIENT
  Sex: Male

DRUGS (3)
  1. CERTICAN [Suspect]
     Active Substance: EVEROLIMUS
     Indication: Liver transplant
     Dosage: 0.25 MG, BID
     Route: 048
  2. CERTICAN [Suspect]
     Active Substance: EVEROLIMUS
     Dosage: 1 MG, BID
     Route: 048
  3. LENVATINIB [Concomitant]
     Active Substance: LENVATINIB
     Indication: Product used for unknown indication
     Route: 065

REACTIONS (8)
  - Platelet count abnormal [Unknown]
  - Alanine aminotransferase increased [Unknown]
  - Gamma-glutamyltransferase increased [Unknown]
  - Haemoglobin decreased [Unknown]
  - Neoplasm malignant [Unknown]
  - Duodenal ulcer [Unknown]
  - Blood pressure diastolic decreased [Unknown]
  - Drug level abnormal [Unknown]
